FAERS Safety Report 12828380 (Version 1)
Quarter: 2016Q4

REPORT INFORMATION
  Report Type: Spontaneous
  Country: US (occurrence: US)
  Receive Date: 20161007
  Receipt Date: 20161007
  Transmission Date: 20170207
  Serious: Yes (Other)
  Sender: FDA-Public Use
  Company Number: US-BAYER-2016-189697

PATIENT
  Age: 48 Year
  Sex: Male
  Weight: 113.38 kg

DRUGS (4)
  1. BENADRYL [Concomitant]
     Active Substance: DIPHENHYDRAMINE HYDROCHLORIDE
  2. COPPERTONE SPORT SPF 30 SPRAY [Suspect]
     Active Substance: AVOBENZONE\HOMOSALATE\OCTISALATE\OCTOCRYLENE\OXYBENZONE
     Indication: PROPHYLAXIS
     Dosage: UNK
     Route: 061
     Dates: start: 20160704, end: 201608
  3. ASPIRIN. [Concomitant]
     Active Substance: ASPIRIN
  4. LOTAN [LORATIDINE] [Concomitant]

REACTIONS (5)
  - Hypersensitivity [Recovered/Resolved]
  - Dry skin [Recovered/Resolved]
  - Urticaria [Recovered/Resolved]
  - Scab [Recovered/Resolved]
  - Rash [Recovered/Resolved]
